FAERS Safety Report 6810285-X (Version None)
Quarter: 2010Q2

REPORT INFORMATION
  Report Type: 
  Country: None (occurrence: None)
  Receive Date: 20100630
  Receipt Date: 20100625
  Transmission Date: 20101027
  Serious: Yes (Death)
  Sender: FDA-Public Use
  Company Number: US-GILEAD-2010-0030073

PATIENT
  Sex: Female
  Weight: 119.86 kg

DRUGS (17)
  1. LETAIRIS [Suspect]
     Indication: PULMONARY ARTERIAL HYPERTENSION
     Route: 048
     Dates: start: 20080828, end: 20100609
  2. OXYGEN [Concomitant]
  3. REVATIO [Concomitant]
  4. DILTIAZEM [Concomitant]
  5. LISINOPRIL [Concomitant]
  6. LASIX [Concomitant]
  7. SPIRONOLACTONE [Concomitant]
  8. PREDNISONE [Concomitant]
  9. ASPIRIN [Concomitant]
  10. WARFARIN [Concomitant]
  11. KLOR-CON [Concomitant]
  12. SIMVASTATIN [Concomitant]
  13. CRESTOR [Concomitant]
  14. METFORMIN HCL [Concomitant]
  15. NOVOLOG [Concomitant]
  16. BACTRIM DS [Concomitant]
  17. TRAVATAN [Concomitant]

REACTIONS (1)
  - DEATH [None]
